FAERS Safety Report 17264366 (Version 3)
Quarter: 2020Q1

REPORT INFORMATION
  Report Type: Report from Study
  Country: US (occurrence: US)
  Receive Date: 20200113
  Receipt Date: 20200306
  Transmission Date: 20200409
  Serious: Yes (Hospitalization)
  Sender: FDA-Public Use
  Company Number: US-EXELIXIS-XL18420026519

PATIENT
  Age: 75 Year
  Sex: Female
  Weight: 51.3 kg

DRUGS (10)
  1. ATEZOLIZUMAB. [Suspect]
     Active Substance: ATEZOLIZUMAB
     Indication: RENAL CELL CARCINOMA
     Dosage: 1200 MG, Q3WEEKS
     Route: 042
     Dates: start: 20190425
  2. COLACE [Concomitant]
     Active Substance: DOCUSATE SODIUM
  3. NORVASC [Concomitant]
     Active Substance: AMLODIPINE BESYLATE
  4. ACIDOPHILUS [Concomitant]
     Active Substance: LACTOBACILLUS ACIDOPHILUS
  5. CRESTOR [Concomitant]
     Active Substance: ROSUVASTATIN CALCIUM
  6. SENOKOT [Concomitant]
     Active Substance: SENNOSIDES
  7. PEPCID [Concomitant]
     Active Substance: FAMOTIDINE
  8. MIRALAX [Concomitant]
     Active Substance: POLYETHYLENE GLYCOL 3350
  9. XL184 [Suspect]
     Active Substance: CABOZANTINIB
     Indication: RENAL CELL CARCINOMA
     Dosage: 60 MG, QD
     Route: 048
     Dates: start: 20190425
  10. XL184 [Suspect]
     Active Substance: CABOZANTINIB
     Dosage: 20 MG, QD
     Route: 048

REACTIONS (2)
  - Acute kidney injury [Recovering/Resolving]
  - Dermatitis exfoliative generalised [Recovered/Resolved]

NARRATIVE: CASE EVENT DATE: 20191206
